FAERS Safety Report 23759585 (Version 2)
Quarter: 2024Q2

REPORT INFORMATION
  Report Type: Spontaneous
  Country: BR (occurrence: BR)
  Receive Date: 20240418
  Receipt Date: 20240423
  Transmission Date: 20240715
  Serious: Yes (Other)
  Sender: FDA-Public Use
  Company Number: BR-TAKEDA-2024TUS030319

PATIENT
  Sex: Male

DRUGS (2)
  1. LISDEXAMFETAMINE DIMESYLATE [Suspect]
     Active Substance: LISDEXAMFETAMINE DIMESYLATE
     Indication: Attention deficit hyperactivity disorder
     Dosage: UNK
     Route: 065
  2. LISDEXAMFETAMINE DIMESYLATE [Suspect]
     Active Substance: LISDEXAMFETAMINE DIMESYLATE
     Dosage: UNK
     Route: 065

REACTIONS (12)
  - Intentional self-injury [Unknown]
  - Disturbance in attention [Unknown]
  - Drug ineffective [Unknown]
  - Obsessive-compulsive disorder [Unknown]
  - Abnormal behaviour [Unknown]
  - Binge eating [Unknown]
  - Heart rate increased [Unknown]
  - Palpitations [Unknown]
  - Blood pressure increased [Unknown]
  - Psychomotor hyperactivity [Unknown]
  - Insomnia [Unknown]
  - Product use issue [Unknown]
